FAERS Safety Report 23587089 (Version 1)
Quarter: 2024Q1

REPORT INFORMATION
  Report Type: Spontaneous
  Country: CA (occurrence: CA)
  Receive Date: 20240301
  Receipt Date: 20240301
  Transmission Date: 20240410
  Serious: Yes (Hospitalization)
  Sender: FDA-Public Use
  Company Number: CA-TEVA-VS-3163653

PATIENT
  Sex: Male
  Weight: 63 kg

DRUGS (18)
  1. FLUVOXAMINE [Suspect]
     Active Substance: FLUVOXAMINE
     Indication: Psychiatric care
     Route: 048
  2. FLUVOXAMINE [Suspect]
     Active Substance: FLUVOXAMINE
     Indication: Psychiatric care
     Route: 048
  3. LORAZEPAM [Suspect]
     Active Substance: LORAZEPAM
     Indication: Agitation
     Route: 030
  4. LOXAPINE SUCCINATE [Suspect]
     Active Substance: LOXAPINE SUCCINATE
     Indication: Agitation
     Route: 048
  5. LOXAPINE SUCCINATE [Suspect]
     Active Substance: LOXAPINE SUCCINATE
     Indication: Agitation
     Route: 030
  6. BENZTROPINE MESYLATE [Suspect]
     Active Substance: BENZTROPINE MESYLATE
     Indication: Extrapyramidal disorder
     Dosage: FREQUENCY: 3 EVERY 1 DAYS?DOSAGE FORM: NOT SPECIFIED
     Route: 030
  7. BENZTROPINE MESYLATE [Suspect]
     Active Substance: BENZTROPINE MESYLATE
     Indication: Extrapyramidal disorder
     Dosage: FREQUENCY: 3 EVERY 1 DAYS
     Route: 048
  8. BREXPIPRAZOLE [Concomitant]
     Active Substance: BREXPIPRAZOLE
     Indication: Psychiatric care
     Route: 048
  9. CLEARLAX [Concomitant]
     Active Substance: POLYETHYLENE GLYCOL 3350
     Indication: Product used for unknown indication
     Dosage: DOSAGE FORM: POWDER FOR SOLUTION ORAL
     Route: 048
  10. CLOZAPINE [Suspect]
     Active Substance: CLOZAPINE
     Indication: Psychiatric care
     Route: 048
  11. CLOZAPINE [Suspect]
     Active Substance: CLOZAPINE
     Indication: Psychiatric care
     Route: 048
  12. CLOZAPINE [Suspect]
     Active Substance: CLOZAPINE
     Indication: Psychiatric care
     Route: 048
  13. LORAZEPAM [Suspect]
     Active Substance: LORAZEPAM
     Indication: Agitation
     Route: 048
  14. PROPRANOLOL [Suspect]
     Active Substance: PROPRANOLOL HYDROCHLORIDE
     Indication: Product used for unknown indication
     Dosage: DOSAGE FORM: NOT SPECIFIED
     Route: 048
  15. QUETIAPINE FUMARATE [Suspect]
     Active Substance: QUETIAPINE FUMARATE
     Indication: Psychiatric care
     Route: 048
  16. QUETIAPINE FUMARATE [Suspect]
     Active Substance: QUETIAPINE FUMARATE
     Indication: Psychiatric care
     Route: 048
  17. QUETIAPINE FUMARATE [Suspect]
     Active Substance: QUETIAPINE FUMARATE
     Indication: Psychiatric care
     Route: 048
  18. QUETIAPINE FUMARATE [Suspect]
     Active Substance: QUETIAPINE FUMARATE
     Indication: Product used for unknown indication
     Route: 048

REACTIONS (16)
  - Condition aggravated [Not Recovered/Not Resolved]
  - Confusional state [Not Recovered/Not Resolved]
  - Constipation [Not Recovered/Not Resolved]
  - Depression [Not Recovered/Not Resolved]
  - Drug interaction [Not Recovered/Not Resolved]
  - Drug level below therapeutic [Not Recovered/Not Resolved]
  - Drug level decreased [Not Recovered/Not Resolved]
  - Dysphemia [Not Recovered/Not Resolved]
  - Fatigue [Not Recovered/Not Resolved]
  - Hypoaesthesia [Not Recovered/Not Resolved]
  - Memory impairment [Not Recovered/Not Resolved]
  - Mental disorder [Not Recovered/Not Resolved]
  - Sedation [Not Recovered/Not Resolved]
  - Somnolence [Not Recovered/Not Resolved]
  - Thinking abnormal [Not Recovered/Not Resolved]
  - Treatment noncompliance [Not Recovered/Not Resolved]
